FAERS Safety Report 9782179 (Version 1)
Quarter: 2013Q4

REPORT INFORMATION
  Report Type: Report from Study
  Country: JP (occurrence: JP)
  Receive Date: 20131226
  Receipt Date: 20131226
  Transmission Date: 20140711
  Serious: Yes (Hospitalization)
  Sender: FDA-Public Use
  Company Number: JP-AMGEN-JPNCT2013090380

PATIENT
  Age: 66 Year
  Sex: Male
  Weight: 59 kg

DRUGS (15)
  1. DARBEPOETIN ALFA [Suspect]
     Indication: NEPHROGENIC ANAEMIA
     Dosage: 40 MUG, Q4WK
     Route: 058
     Dates: start: 20101109
  2. ADALAT-CR [Concomitant]
     Dosage: UNK
     Route: 048
  3. OLMETEC [Concomitant]
     Dosage: UNK
     Route: 048
  4. LUPRAC [Concomitant]
     Indication: DIABETIC NEPHROPATHY
     Dosage: UNK
     Route: 048
  5. ARGAMATE [Concomitant]
     Indication: DIABETIC NEPHROPATHY
     Dosage: UNK
     Route: 048
  6. CRESTOR [Concomitant]
     Dosage: UNK
     Route: 048
  7. CARBADOGEN [Concomitant]
     Dosage: UNK
     Route: 048
  8. VOGLISE [Concomitant]
     Indication: DIABETIC NEPHROPATHY
     Dosage: UNK
     Route: 048
  9. ALOSITOL [Concomitant]
     Dosage: UNK
     Route: 048
  10. DIART [Concomitant]
     Indication: DIABETIC NEPHROPATHY
     Dosage: UNK
     Route: 048
  11. BAYASPIRIN [Concomitant]
     Indication: DIABETIC NEPHROPATHY
     Dosage: UNK
     Route: 048
  12. PLAVIX [Concomitant]
     Indication: DIABETIC NEPHROPATHY
     Dosage: UNK
     Route: 048
  13. LIVALO [Concomitant]
     Indication: DIABETIC NEPHROPATHY
     Dosage: UNK
     Route: 048
  14. PARIET [Concomitant]
     Indication: PROPHYLAXIS
     Dosage: UNK
     Route: 048
  15. SEPAMIT-R [Concomitant]
     Dosage: UNK
     Route: 048

REACTIONS (4)
  - Haematoma [Recovering/Resolving]
  - Angina unstable [Recovering/Resolving]
  - Angina pectoris [Recovering/Resolving]
  - Oedema [Recovered/Resolved]
